FAERS Safety Report 19153036 (Version 1)
Quarter: 2021Q2

REPORT INFORMATION
  Report Type: Spontaneous
  Country: US (occurrence: US)
  Receive Date: 20210419
  Receipt Date: 20210419
  Transmission Date: 20210717
  Serious: Yes (Other)
  Sender: FDA-Public Use
  Company Number: US-DECIPHERA PHARMACEUTICALS LLC-2021US000281

PATIENT
  Sex: Male

DRUGS (1)
  1. QINLOCK [Suspect]
     Active Substance: RIPRETINIB
     Indication: NEOPLASM MALIGNANT
     Dosage: 150 MILLIGRAM, QD
     Dates: start: 20200601

REACTIONS (6)
  - Headache [Unknown]
  - Confusional state [Unknown]
  - Blood potassium decreased [Unknown]
  - Seizure [Unknown]
  - Amnesia [Unknown]
  - Blood glucose increased [Unknown]
